FAERS Safety Report 20779713 (Version 4)
Quarter: 2023Q1

REPORT INFORMATION
  Report Type: Report from Study
  Country: TW (occurrence: TW)
  Receive Date: 20220503
  Receipt Date: 20230207
  Transmission Date: 20230417
  Serious: Yes (Hospitalization)
  Sender: FDA-Public Use
  Company Number: TW-JNJFOC-20220455038

PATIENT
  Age: 71 Year
  Sex: Female
  Weight: 55.6 kg

DRUGS (22)
  1. AMIVANTAMAB [Suspect]
     Active Substance: AMIVANTAMAB
     Indication: Non-small cell lung cancer metastatic
     Dosage: START TIME: 12:45,  END TIME: 13:10
     Route: 042
     Dates: start: 20210609, end: 20220414
  2. PENTOXIFYLLINE [Concomitant]
     Active Substance: PENTOXIFYLLINE
     Indication: Carpal tunnel syndrome
     Route: 048
     Dates: start: 20130109
  3. ATORVASTATIN [Concomitant]
     Active Substance: ATORVASTATIN
     Indication: Hyperlipidaemia
     Route: 048
     Dates: start: 20160518
  4. TEARS NATURALE [DEXTRAN 70;HYPROMELLOSE] [Concomitant]
     Indication: Dry eye
     Route: 047
     Dates: start: 20200727
  5. LEVETIRACETAM [Concomitant]
     Active Substance: LEVETIRACETAM
     Indication: Prophylaxis
     Route: 048
     Dates: start: 20210402
  6. ACETYLCYSTEINE [Concomitant]
     Active Substance: ACETYLCYSTEINE
     Indication: Prophylaxis
     Route: 048
     Dates: start: 20210510
  7. TIMOLOL [Concomitant]
     Active Substance: TIMOLOL
     Indication: Paronychia
     Route: 061
     Dates: start: 20220406
  8. TIMOLOL [Concomitant]
     Active Substance: TIMOLOL
     Route: 061
     Dates: start: 20220406
  9. TIMOLOL [Concomitant]
     Active Substance: TIMOLOL
     Route: 061
     Dates: start: 20220427
  10. VIMAX [CLOBETASOL PROPIONATE] [Concomitant]
     Indication: Folliculitis
     Dosage: UNIT DOSE 1 UNSPECIFIED UNIT
     Route: 061
     Dates: start: 20210902
  11. ZINE ORABASE [Concomitant]
     Indication: Mouth ulceration
     Dosage: UNIT DOSE 1 UNSPECIFIED UNIT
     Route: 061
     Dates: start: 20220413, end: 20220419
  12. ZINE ORABASE [Concomitant]
     Dosage: DOSE: ^1^
     Route: 048
     Dates: start: 20220413, end: 20220419
  13. METHYLCOBALAMIN [Concomitant]
     Active Substance: METHYLCOBALAMIN
     Indication: Polyneuropathy
     Route: 048
     Dates: start: 20220317
  14. METHYLCOBALAMIN [Concomitant]
     Active Substance: METHYLCOBALAMIN
     Route: 048
     Dates: start: 20220414
  15. ALLEGRA [Concomitant]
     Active Substance: FEXOFENADINE HYDROCHLORIDE
     Indication: Rhinitis
     Route: 048
     Dates: start: 20220317, end: 20220428
  16. PIRENOXINE [Concomitant]
     Active Substance: PIRENOXINE
     Indication: Cataract
     Route: 047
     Dates: start: 20220323
  17. PIRENOXINE [Concomitant]
     Active Substance: PIRENOXINE
     Route: 047
     Dates: start: 20220420
  18. FRAMYCIN [FRAMYCETIN SULFATE] [Concomitant]
     Indication: Therapy change
     Route: 061
     Dates: start: 20220330
  19. FRAMYCIN [FRAMYCETIN SULFATE] [Concomitant]
     Route: 061
     Dates: start: 20220426
  20. CYMBALTA [Concomitant]
     Active Substance: DULOXETINE HYDROCHLORIDE
     Indication: Polyneuropathy
     Route: 048
     Dates: start: 20220331
  21. MOMETASONE FUROATE [Concomitant]
     Active Substance: MOMETASONE FUROATE
     Indication: Rhinitis
     Route: 065
     Dates: start: 20220414
  22. MOMETASONE FUROATE [Concomitant]
     Active Substance: MOMETASONE FUROATE
     Indication: Rash papular
     Route: 061
     Dates: start: 20220420

REACTIONS (1)
  - Deep vein thrombosis [Recovered/Resolved]

NARRATIVE: CASE EVENT DATE: 20220424
